FAERS Safety Report 16227331 (Version 1)
Quarter: 2019Q2

REPORT INFORMATION
  Report Type: Spontaneous
  Country: US (occurrence: US)
  Receive Date: 20190318
  Receipt Date: 20190318
  Transmission Date: 20190711
  Serious: Yes (Hospitalization)
  Sender: FDA-Public Use
  Company Number: None

PATIENT
  Age: 49 Year
  Sex: Male

DRUGS (20)
  1. PREDNISONE. [Concomitant]
     Active Substance: PREDNISONE
  2. PANTOPRAZOLE [Concomitant]
     Active Substance: PANTOPRAZOLE
  3. EXTRA ACTION SYP [Concomitant]
  4. PROMETH/COD SOL [Concomitant]
  5. AMOX/K CLAV [Concomitant]
     Active Substance: AMOXICILLIN\CLAVULANATE POTASSIUM
  6. IBUPROFEN. [Concomitant]
     Active Substance: IBUPROFEN
  7. PROVENTIL [Concomitant]
     Active Substance: ALBUTEROL
  8. FLUTICASONE. [Concomitant]
     Active Substance: FLUTICASONE
  9. MONTELUKAST [Concomitant]
     Active Substance: MONTELUKAST SODIUM
  10. PROVENTIL [Concomitant]
     Active Substance: ALBUTEROL
  11. OSELTAMIVIR [Concomitant]
     Active Substance: OSELTAMIVIR
  12. HUMIRA [Suspect]
     Active Substance: ADALIMUMAB
     Indication: CROHN^S DISEASE
     Route: 058
     Dates: start: 20190130
  13. DOK [Concomitant]
     Active Substance: DOCUSATE SODIUM
  14. AMITRIPTYLIN [Concomitant]
     Active Substance: AMITRIPTYLINE
  15. PEG-3350/KCL SOL [Concomitant]
  16. FLUOXETINE [Concomitant]
     Active Substance: FLUOXETINE HYDROCHLORIDE
  17. HYDROCO/APAP [Concomitant]
     Active Substance: ACETAMINOPHEN\HYDROCODONE
  18. SUCRALFATE. [Concomitant]
     Active Substance: SUCRALFATE
  19. RABEPRAZOLE [Concomitant]
     Active Substance: RABEPRAZOLE
  20. TAMSULOSIN [Concomitant]
     Active Substance: TAMSULOSIN

REACTIONS (2)
  - Eating disorder [None]
  - Condition aggravated [None]

NARRATIVE: CASE EVENT DATE: 20190312
